FAERS Safety Report 16357730 (Version 5)
Quarter: 2019Q2

REPORT INFORMATION
  Report Type: Report from Study
  Country: US (occurrence: US)
  Receive Date: 20190527
  Receipt Date: 20190621
  Transmission Date: 20190711
  Serious: Yes (Hospitalization, Other)
  Sender: FDA-Public Use
  Company Number: PHHY2019US074329

PATIENT
  Age: 54 Year
  Sex: Female
  Weight: 79.4 kg

DRUGS (4)
  1. METFORMINE HCL [Suspect]
     Active Substance: METFORMIN HYDROCHLORIDE
     Indication: HYPERGLYCAEMIA
     Dosage: 500 MG, UNK
     Route: 048
  2. PIQRAY [Suspect]
     Active Substance: ALPELISIB
     Indication: BREAST CANCER METASTATIC
     Dosage: UNK
     Route: 048
     Dates: start: 20190221
  3. PIQRAY [Suspect]
     Active Substance: ALPELISIB
     Dosage: 250 MG, UNK
     Route: 048
     Dates: start: 20190315
  4. FASLODEX [Concomitant]
     Active Substance: FULVESTRANT
     Indication: PRODUCT USED FOR UNKNOWN INDICATION
     Dosage: UNK
     Route: 065
     Dates: start: 20190221

REACTIONS (20)
  - Rash [Recovering/Resolving]
  - Device related infection [Recovered/Resolved]
  - Erythema [Recovering/Resolving]
  - Mucosal inflammation [Not Recovered/Not Resolved]
  - Weight decreased [Not Recovered/Not Resolved]
  - Chills [Recovering/Resolving]
  - Diarrhoea [Not Recovered/Not Resolved]
  - Alanine aminotransferase increased [Not Recovered/Not Resolved]
  - Blood sodium decreased [Not Recovered/Not Resolved]
  - Pruritus [Recovering/Resolving]
  - Pain [Recovering/Resolving]
  - Blood alkaline phosphatase increased [Not Recovered/Not Resolved]
  - Pleural infection [Recovering/Resolving]
  - Device related infection [Recovering/Resolving]
  - Purulent discharge [Recovered/Resolved]
  - Aspartate aminotransferase increased [Recovering/Resolving]
  - Staphylococcal infection [Recovering/Resolving]
  - Lymphocyte count decreased [Not Recovered/Not Resolved]
  - Hypoalbuminaemia [Not Recovered/Not Resolved]
  - Blood bilirubin increased [Recovered/Resolved]

NARRATIVE: CASE EVENT DATE: 20190228
